FAERS Safety Report 24149216 (Version 1)
Quarter: 2024Q3

REPORT INFORMATION
  Report Type: Spontaneous
  Country: RO (occurrence: RO)
  Receive Date: 20240729
  Receipt Date: 20240729
  Transmission Date: 20241017
  Serious: Yes (Death, Hospitalization, Other)
  Sender: BRISTOL MYERS SQUIBB
  Company Number: RO-TAKEDA-2024TUS072317

PATIENT
  Age: 71 Year
  Sex: Male

DRUGS (3)
  1. LENALIDOMIDE [Suspect]
     Active Substance: LENALIDOMIDE
     Indication: Plasma cell myeloma refractory
     Dosage: UNK
     Route: 048
     Dates: start: 202101
  2. DEXAMETHASONE [Suspect]
     Active Substance: DEXAMETHASONE
     Indication: Plasma cell myeloma refractory
     Dosage: UNK
     Route: 048
     Dates: start: 202101
  3. IXAZOMIB [Suspect]
     Active Substance: IXAZOMIB
     Indication: Plasma cell myeloma refractory
     Dosage: UNK
     Route: 048
     Dates: start: 202101

REACTIONS (6)
  - Asthenia [Unknown]
  - Hypotension [Fatal]
  - Dyspnoea exertional [Unknown]
  - Loss of consciousness [Fatal]
  - Urinary incontinence [Fatal]
  - Anxiety [Unknown]
